FAERS Safety Report 11291587 (Version 6)
Quarter: 2018Q2

REPORT INFORMATION
  Report Type: Report from Study
  Country: KR (occurrence: KR)
  Receive Date: 20150722
  Receipt Date: 20180608
  Transmission Date: 20180711
  Serious: Yes (Death, Hospitalization, Other)
  Sender: FDA-Public Use
  Company Number: KR-EISAI MEDICAL RESEARCH-EC-2015-008706

PATIENT
  Sex: Female
  Weight: 47.2 kg

DRUGS (11)
  1. URSA [Concomitant]
     Active Substance: URSODIOL
  2. SOLETON [Concomitant]
     Active Substance: ZALTOPROFEN
  3. LEGALON [Concomitant]
     Active Substance: DIETARY SUPPLEMENT\HERBALS\MILK THISTLE
  4. ADELAVIN -9 [Concomitant]
  5. STILLEN [Concomitant]
  6. TARGIN [Concomitant]
     Active Substance: NALOXONE HYDROCHLORIDE\OXYCODONE HYDROCHLORIDE
  7. HALAVEN [Suspect]
     Active Substance: ERIBULIN MESYLATE
     Indication: BREAST CANCER METASTATIC
     Route: 041
     Dates: start: 20150420, end: 20150610
  8. PENIRAMIN [Concomitant]
  9. DOXYCYCLINE. [Concomitant]
     Active Substance: DOXYCYCLINE
  10. HALAVEN [Suspect]
     Active Substance: ERIBULIN MESYLATE
     Route: 041
     Dates: start: 20150618, end: 20150618
  11. OMNICEF [Concomitant]
     Active Substance: CEFDINIR

REACTIONS (2)
  - Osteonecrosis of jaw [Not Recovered/Not Resolved]
  - Pneumonia [Fatal]

NARRATIVE: CASE EVENT DATE: 20150420
